FAERS Safety Report 4598662-1 (Version None)
Quarter: 2005Q1

REPORT INFORMATION
  Report Type: 
  Country: None (occurrence: None)
  Receive Date: 20050304
  Receipt Date: 20050302
  Transmission Date: 20050727
  Serious: Yes (Other)
  Sender: FDA-Public Use
  Company Number: NO-MERCK-0503NOR00007

PATIENT
  Age: 60 Year
  Sex: Female

DRUGS (6)
  1. VIOXX [Suspect]
     Indication: POST PROCEDURAL PAIN
     Route: 048
     Dates: start: 20040701, end: 20040706
  2. AMILORIDE HYDROCHLORIDE AND HYDROCHLOROTHIAZIDE [Concomitant]
     Indication: HYPERTENSION
     Route: 048
     Dates: start: 19860101
  3. ACETAMINOPHEN [Concomitant]
     Indication: POST PROCEDURAL PAIN
     Route: 048
     Dates: start: 20040701, end: 20040708
  4. HYZAAR [Concomitant]
     Indication: HYPERTENSION
     Route: 048
     Dates: start: 20010101
  5. LEVOTHYROXINE SODIUM [Concomitant]
     Indication: HYPOTHYROIDISM
     Route: 048
     Dates: start: 20010101
  6. ACETAMINOPHEN AND CODEINE PHOSPHATE [Concomitant]
     Indication: POST PROCEDURAL PAIN
     Route: 048
     Dates: start: 20040701, end: 20040708

REACTIONS (1)
  - ELECTROCARDIOGRAM ABNORMAL [None]
